FAERS Safety Report 5610905-1 (Version None)
Quarter: 2008Q1

REPORT INFORMATION
  Report Type: 
  Country: None (occurrence: None)
  Receive Date: 20080201
  Receipt Date: 20080123
  Transmission Date: 20080703
  Serious: Yes (Life-Threatening, Hospitalization, Other)
  Sender: FDA-Public Use
  Company Number: JP-BRISTOL-MYERS SQUIBB COMPANY-14021521

PATIENT
  Age: 45 Year
  Sex: Male

DRUGS (16)
  1. IFOMIDE [Suspect]
     Indication: TESTICULAR NEOPLASM
     Dosage: INFUSION 1: 30JUL07-03AUG07 (IV) 2: 27AUG07-31AUG07 (IV)
     Route: 041
     Dates: start: 20071122, end: 20071124
  2. UROMITEXAN [Suspect]
     Indication: PROPHYLAXIS
     Route: 041
     Dates: start: 20071122, end: 20071124
  3. TAXOL [Suspect]
     Indication: TESTICULAR NEOPLASM
     Route: 041
     Dates: start: 20071121, end: 20071121
  4. RANDA [Suspect]
     Indication: TESTICULAR NEOPLASM
     Dosage: INFUSION 1: 30JUL07-03AUG07 2: 27AUG07-31AUG07
     Route: 042
     Dates: start: 20071122, end: 20071124
  5. EXAL [Suspect]
     Indication: TESTICULAR NEOPLASM
     Dosage: INFUSION 1: 30JUL07-03AUG07
     Route: 042
     Dates: start: 20070827, end: 20070831
  6. LASIX [Concomitant]
     Dates: start: 20071121, end: 20071122
  7. MANNITOL [Concomitant]
     Dates: start: 20071122, end: 20071124
  8. MEYLON [Concomitant]
     Dates: start: 20071122, end: 20071124
  9. METOCLOPRAMIDE [Concomitant]
     Dates: start: 20071122, end: 20071124
  10. KYTRIL [Concomitant]
     Dates: start: 20071120, end: 20071124
  11. DECADRON [Concomitant]
     Dates: start: 20071120, end: 20071124
  12. JUVELA NICOTINATE [Concomitant]
     Dates: start: 20071022, end: 20071124
  13. ALLEGRA [Concomitant]
     Dates: start: 20071022, end: 20071124
  14. MOBIC [Concomitant]
     Dates: start: 20070703, end: 20071124
  15. BLOPRESS [Concomitant]
     Dates: start: 20070205, end: 20071124
  16. CYANOCOBALAMIN [Concomitant]
     Dates: start: 20070702, end: 20071124

REACTIONS (6)
  - CONFUSIONAL STATE [None]
  - CONVULSION [None]
  - FALL [None]
  - NEUTROPHIL COUNT DECREASED [None]
  - TOXIC ENCEPHALOPATHY [None]
  - WHITE BLOOD CELL COUNT DECREASED [None]
